FAERS Safety Report 6592640-9 (Version None)
Quarter: 2010Q1

REPORT INFORMATION
  Report Type: 
  Country: None (occurrence: None)
  Receive Date: 20100222
  Receipt Date: 20100215
  Transmission Date: 20100710
  Serious: Yes (Hospitalization)
  Sender: FDA-Public Use
  Company Number: ES-BIOGENIDEC-2009BI028358

PATIENT
  Age: 44 Year
  Sex: Female
  Weight: 65 kg

DRUGS (6)
  1. TYSABRI [Suspect]
     Indication: MULTIPLE SCLEROSIS
     Route: 042
     Dates: start: 20081020
  2. VENLAFAXINE [Concomitant]
  3. GABAPENTINA [Concomitant]
  4. CALCIUM [Concomitant]
  5. RISEDRONIC ACID [Concomitant]
  6. NOIAFREN [Concomitant]

REACTIONS (1)
  - ENDOMETRIOSIS [None]
